FAERS Safety Report 15787784 (Version 1)
Quarter: 2019Q1

REPORT INFORMATION
  Report Type: Spontaneous
  Country: DE (occurrence: DE)
  Receive Date: 20190103
  Receipt Date: 20190103
  Transmission Date: 20190417
  Serious: Yes (Life-Threatening, Hospitalization)
  Sender: FDA-Public Use
  Company Number: DE-SUN PHARMACEUTICAL INDUSTRIES LTD-2018RR-195190

PATIENT
  Age: 62 Year
  Sex: Female
  Weight: 109 kg

DRUGS (5)
  1. METOPROLOL. [Suspect]
     Active Substance: METOPROLOL
     Indication: HYPERTENSION
     Dosage: UNK
     Route: 048
     Dates: start: 20030308, end: 20030328
  2. DIGITOXIN [Suspect]
     Active Substance: DIGITOXIN
     Dosage: 0.1 MILLIGRAM
     Route: 048
     Dates: start: 20030308, end: 20030317
  3. MARCUMAR [Suspect]
     Active Substance: PHENPROCOUMON
     Indication: ATRIAL FIBRILLATION
     Dosage: UNK
     Route: 048
     Dates: start: 20030308, end: 20030328
  4. DIGITOXIN [Suspect]
     Active Substance: DIGITOXIN
     Indication: ATRIAL FIBRILLATION
     Dosage: UNK
     Route: 042
     Dates: start: 20030306, end: 20030308
  5. DIGITOXIN [Suspect]
     Active Substance: DIGITOXIN
     Dosage: 0.07 MILLIGRAM
     Route: 048
     Dates: start: 20030318, end: 20030326

REACTIONS (3)
  - Bacterial infection [Not Recovered/Not Resolved]
  - Dermatitis [Not Recovered/Not Resolved]
  - Rash papular [Not Recovered/Not Resolved]

NARRATIVE: CASE EVENT DATE: 200303
